FAERS Safety Report 17190882 (Version 1)
Quarter: 2019Q4

REPORT INFORMATION
  Report Type: Spontaneous
  Country: HR (occurrence: HR)
  Receive Date: 20191223
  Receipt Date: 20191223
  Transmission Date: 20200122
  Serious: Yes (Hospitalization)
  Sender: FDA-Public Use
  Company Number: HR-ASTRAZENECA-2019SF82357

PATIENT
  Age: 53 Year
  Sex: Male
  Weight: 88 kg

DRUGS (9)
  1. RAMIPRIL. [Concomitant]
     Active Substance: RAMIPRIL
     Indication: ESSENTIAL HYPERTENSION
  2. FORXIGA [Suspect]
     Active Substance: DAPAGLIFLOZIN
     Indication: DIABETES MELLITUS
     Route: 048
     Dates: start: 20191108, end: 20191117
  3. ASPIRIN. [Concomitant]
     Active Substance: ASPIRIN
     Indication: TYPE 2 DIABETES MELLITUS
  4. METFORMIN [Concomitant]
     Active Substance: METFORMIN HYDROCHLORIDE
     Indication: TYPE 2 DIABETES MELLITUS
  5. CLAVULANIC ACID [Concomitant]
     Active Substance: CLAVULANIC ACID
  6. AMOXICILLIN. [Concomitant]
     Active Substance: AMOXICILLIN
  7. INSULIN [Concomitant]
     Active Substance: INSULIN NOS
     Indication: TYPE 2 DIABETES MELLITUS
  8. LACIPIL [Concomitant]
     Active Substance: LACIDIPINE
     Indication: ESSENTIAL HYPERTENSION
  9. SORTIS [Concomitant]
     Active Substance: ATORVASTATIN
     Indication: OBESITY

REACTIONS (1)
  - Diabetic ketoacidosis [Recovered/Resolved]

NARRATIVE: CASE EVENT DATE: 20191118
